FAERS Safety Report 24532177 (Version 2)
Quarter: 2024Q4

REPORT INFORMATION
  Report Type: Spontaneous
  Country: US (occurrence: US)
  Receive Date: 20241022
  Receipt Date: 20241022
  Transmission Date: 20250114
  Serious: Yes (Hospitalization)
  Sender: ROCHE
  Company Number: US-ROCHE-10000108646

PATIENT

DRUGS (1)
  1. HEMLIBRA [Suspect]
     Active Substance: EMICIZUMAB-KXWH
     Indication: Product used for unknown indication
     Route: 065

REACTIONS (4)
  - Spontaneous haemorrhage [Unknown]
  - Haemorrhage [Unknown]
  - Pulmonary embolism [Unknown]
  - Arthropathy [Unknown]

NARRATIVE: CASE EVENT DATE: 20200901
